FAERS Safety Report 7616698-0 (Version None)
Quarter: 2011Q3

REPORT INFORMATION
  Report Type: 
  Country: None (occurrence: None)
  Receive Date: 20110717
  Receipt Date: 20110705
  Transmission Date: 20111222
  Serious: Yes (Other)
  Sender: FDA-Public Use
  Company Number: CH-BRISTOL-MYERS SQUIBB COMPANY-15876006

PATIENT
  Age: 47 Year
  Sex: Male

DRUGS (7)
  1. INDINIVIR SULFATE [Suspect]
     Indication: HIV INFECTION
     Dates: start: 19960101, end: 19980901
  2. RITONAVIR [Suspect]
     Indication: HIV INFECTION
     Dates: start: 19990901
  3. ZIDOVUDINE [Suspect]
     Indication: HIV INFECTION
     Dosage: INTERRUPTED ON APR93,NOV1995. RESTARTED ON JAN1995.
     Dates: start: 19921201, end: 19990801
  4. STAVUDINE [Suspect]
     Indication: HIV INFECTION
     Dates: start: 19951101
  5. DIDANOSINE [Suspect]
     Indication: HIV INFECTION
     Dosage: DOSE DECREASED FROM 200MG TO 100MG ON NOV1993. THEN INCREASED TO 200MG ON MAR1994
     Dates: start: 19930401, end: 19990801
  6. EFAVIRENZ [Suspect]
     Indication: HIV INFECTION
     Dates: start: 19990901
  7. SAQUINAVIR [Suspect]
     Indication: HIV INFECTION
     Dates: start: 19990901

REACTIONS (1)
  - NODULAR REGENERATIVE HYPERPLASIA [None]
